FAERS Safety Report 4459655-8 (Version None)
Quarter: 2004Q4

REPORT INFORMATION
  Report Type: 
  Country: None (occurrence: None)
  Receive Date: 20040917
  Receipt Date: 20031007
  Transmission Date: 20050328
  Serious: Yes (Hospitalization)
  Sender: FDA-Public Use
  Company Number: 20031000086

PATIENT
  Age: 60 Year
  Sex: Male

DRUGS (6)
  1. PHENYTOIN [Suspect]
     Indication: GRAND MAL CONVULSION
     Dosage: 430 MG DAILY
  2. PHENYTOIN [Suspect]
     Indication: GRAND MAL CONVULSION
     Dosage: 300 MG DAILY
  3. PHENYTOIN [Suspect]
     Indication: GRAND MAL CONVULSION
     Dosage: 100 MG DAILY
  4. PHENYTOIN [Suspect]
     Indication: GRAND MAL CONVULSION
     Dosage: 200 MG DAILY
  5. FLUOROURACIL [Suspect]
     Indication: CHEMOTHERAPY
     Dosage: 370 MG DAILY
  6. CAPECITABINE [Concomitant]

REACTIONS (1)
  - DRUG TOXICITY [None]
